FAERS Safety Report 10949559 (Version 1)
Quarter: 2015Q1

REPORT INFORMATION
  Report Type: Spontaneous
  Country: US (occurrence: US)
  Receive Date: 20150324
  Receipt Date: 20150324
  Transmission Date: 20150721
  Serious: No
  Sender: FDA-Public Use
  Company Number: US-ASTRAZENECA-2015SE24236

PATIENT
  Age: 26 Year
  Sex: Female
  Weight: 112 kg

DRUGS (7)
  1. SEROQUEL XR [Suspect]
     Active Substance: QUETIAPINE FUMARATE
     Indication: SCHIZOPHRENIA
     Route: 048
     Dates: start: 2008, end: 2009
  2. BETHANECHOL [Concomitant]
     Active Substance: BETHANECHOL
     Indication: BLADDER DISORDER
     Route: 048
     Dates: start: 2014
  3. TERAZESOIN [Concomitant]
     Indication: BLADDER DISORDER
     Route: 048
     Dates: start: 2014
  4. NITROFURANTIN [Concomitant]
     Active Substance: NITROFURANTOIN
     Indication: CYSTITIS
     Route: 048
     Dates: start: 20150305
  5. SEROQUEL XR [Suspect]
     Active Substance: QUETIAPINE FUMARATE
     Indication: SCHIZOPHRENIA
     Route: 048
     Dates: start: 201502
  6. SEROQUEL XR [Suspect]
     Active Substance: QUETIAPINE FUMARATE
     Indication: BIPOLAR DISORDER
     Route: 048
     Dates: start: 2008, end: 2009
  7. SEROQUEL XR [Suspect]
     Active Substance: QUETIAPINE FUMARATE
     Indication: BIPOLAR DISORDER
     Route: 048
     Dates: start: 201502

REACTIONS (5)
  - Dysuria [Unknown]
  - Intentional product misuse [Unknown]
  - Hallucination, auditory [Unknown]
  - Drug ineffective [Unknown]
  - Schizophrenia [Unknown]

NARRATIVE: CASE EVENT DATE: 2013
